FAERS Safety Report 18895418 (Version 1)
Quarter: 2021Q1

REPORT INFORMATION
  Report Type: Spontaneous
  Country: US (occurrence: US)
  Receive Date: 20210215
  Receipt Date: 20210215
  Transmission Date: 20210420
  Serious: No
  Sender: FDA-Public Use
  Company Number: US-BAYER-2021-060559

PATIENT
  Age: 92 Year
  Sex: Male

DRUGS (12)
  1. TAMSULOSIN [Concomitant]
     Active Substance: TAMSULOSIN
  2. POTASSIUM [Concomitant]
     Active Substance: POTASSIUM
  3. GEMFIBROZIL. [Concomitant]
     Active Substance: GEMFIBROZIL
  4. ALDACTONE A [Concomitant]
     Active Substance: SPIRONOLACTONE
  5. PSYLLIUM FIBRE [Concomitant]
     Active Substance: HERBALS\PLANTAGO OVATA SEED COAT
  6. CARBIDOPA/LEVODOPA [Concomitant]
     Active Substance: CARBIDOPA\LEVODOPA
  7. VITAMIN D3 [Concomitant]
     Active Substance: CHOLECALCIFEROL
  8. LASIX [Concomitant]
     Active Substance: FUROSEMIDE
  9. OMEPRAZOLE. [Concomitant]
     Active Substance: OMEPRAZOLE
  10. LUPRON [Concomitant]
     Active Substance: LEUPROLIDE ACETATE
  11. ANDROGEN RECEPTOR ANTAGONIST (DAROLUTAMIDE) [Suspect]
     Active Substance: DAROLUTAMIDE
     Indication: PROSTATE CANCER
     Dosage: 300 MG, BID
     Route: 048
     Dates: start: 20210203
  12. PREDNISONE. [Concomitant]
     Active Substance: PREDNISONE

REACTIONS (3)
  - Diarrhoea [None]
  - Off label use [None]
  - Gastrointestinal disorder [None]
